FAERS Safety Report 21960523 (Version 3)
Quarter: 2023Q1

REPORT INFORMATION
  Report Type: Spontaneous
  Country: FR (occurrence: FR)
  Receive Date: 20230207
  Receipt Date: 20230320
  Transmission Date: 20230418
  Serious: Yes (Hospitalization, Other)
  Sender: FDA-Public Use
  Company Number: FR-MLMSERVICE-20230125-4055339-2

PATIENT
  Age: 37 Year
  Sex: Female

DRUGS (6)
  1. PREDNISONE [Suspect]
     Active Substance: PREDNISONE
     Indication: Immunosuppressant drug therapy
     Dosage: UNK
     Route: 065
  2. PREDNISONE [Suspect]
     Active Substance: PREDNISONE
     Dosage: 20 MILLIGRAM, ONCE A DAY
     Route: 065
     Dates: start: 1990
  3. MYCOPHENOLATE MOFETIL [Suspect]
     Active Substance: MYCOPHENOLATE MOFETIL
     Indication: Immunosuppressant drug therapy
     Dosage: UNK
     Route: 065
     Dates: end: 2020
  4. MYCOPHENOLATE MOFETIL [Suspect]
     Active Substance: MYCOPHENOLATE MOFETIL
     Dosage: UNK
     Route: 065
     Dates: start: 2010, end: 20200424
  5. TACROLIMUS [Suspect]
     Active Substance: TACROLIMUS
     Indication: Immunosuppressant drug therapy
     Dosage: UNK
     Route: 065
     Dates: end: 2020
  6. TACROLIMUS [Suspect]
     Active Substance: TACROLIMUS
     Dosage: UNK
     Route: 065
     Dates: start: 202003, end: 20200517

REACTIONS (10)
  - Splenomegaly [Unknown]
  - Pleural effusion [Unknown]
  - Ascites [Unknown]
  - Enteritis infectious [Unknown]
  - Erythema nodosum [Unknown]
  - Atypical mycobacterial infection [Not Recovered/Not Resolved]
  - Hepatomegaly [Unknown]
  - Adenomatous polyposis coli [Unknown]
  - Immune reconstitution inflammatory syndrome [Recovered/Resolved]
  - Adenocarcinoma of colon [Recovered/Resolved]

NARRATIVE: CASE EVENT DATE: 20200101
